FAERS Safety Report 17802065 (Version 2)
Quarter: 2020Q2

REPORT INFORMATION
  Report Type: Report from Study
  Country: US (occurrence: US)
  Receive Date: 20200519
  Receipt Date: 20200526
  Transmission Date: 20200714
  Serious: Yes (Other)
  Sender: FDA-Public Use
  Company Number: US-ROCHE-2600155

PATIENT
  Sex: Male
  Weight: 41.9 kg

DRUGS (6)
  1. TESTOSTERONE CYPIONATE. [Concomitant]
     Active Substance: TESTOSTERONE CYPIONATE
     Dosage: 200 MG/ML
     Route: 030
  2. NUTROPIN AQ [Suspect]
     Active Substance: SOMATROPIN
     Indication: HYPOPITUITARISM
     Dosage: 10 MG/2 ML; INJECT 1.6 MG EACH NIGHT (REQUESTED FOR 04/SEP/2018)
     Route: 058
  3. HYDROCORTISONE. [Concomitant]
     Active Substance: HYDROCORTISONE
     Dosage: TAB 2 TIMES A DAY TRIPLE DOSE IN TIMES OF ILLNESS
     Route: 048
  4. LEVOTHYROXINE SODIUM. [Concomitant]
     Active Substance: LEVOTHYROXINE SODIUM
     Dosage: TAKE 1 TABLET BY MOUTH ORAL ONCE A DAY
     Route: 048
  5. VIMPAT [Concomitant]
     Active Substance: LACOSAMIDE
     Dosage: 10 MG/ML
     Route: 048
     Dates: start: 20190208
  6. GLUCAGON EMERGENCY KIT [Concomitant]
     Active Substance: GLUCAGON
     Route: 065

REACTIONS (3)
  - Abdominal operation [Recovered/Resolved]
  - Petit mal epilepsy [Unknown]
  - Necrotising colitis [Recovered/Resolved]
